FAERS Safety Report 7855692 (Version 3)
Quarter: 2014Q1

REPORT INFORMATION
  Report Type: Spontaneous
  Country: US (occurrence: US)
  Receive Date: 20110315
  Receipt Date: 20140130
  Transmission Date: 20141002
  Serious: Yes (Other)
  Sender: FDA-Public Use
  Company Number: US-BAYER-2011-021548

PATIENT
  Age: 43 Year
  Sex: Female
  Weight: 72.56 kg

DRUGS (2)
  1. YASMIN [Suspect]
     Indication: FIBROMA
     Dosage: UNK
     Dates: start: 20060212, end: 20061105
  2. YASMIN [Suspect]
     Indication: MENORRHAGIA

REACTIONS (5)
  - Gallbladder disorder [None]
  - Injury [None]
  - Pain [None]
  - Cholecystitis chronic [None]
  - Biliary dyskinesia [None]
